FAERS Safety Report 9439861 (Version 1)
Quarter: 2013Q3

REPORT INFORMATION
  Report Type: Report from Study
  Country: CA (occurrence: CA)
  Receive Date: 20130805
  Receipt Date: 20130805
  Transmission Date: 20140515
  Serious: Yes (Hospitalization, Other)
  Sender: FDA-Public Use
  Company Number: CA-JNJFOC-20130718321

PATIENT
  Age: 69 Year
  Sex: Female
  Weight: 82.8 kg

DRUGS (3)
  1. REMICADE [Suspect]
     Indication: CROHN^S DISEASE
     Route: 042
     Dates: start: 20130729
  2. REMICADE [Suspect]
     Indication: CROHN^S DISEASE
     Route: 042
     Dates: start: 20120710
  3. VITAMIN B12 [Concomitant]
     Route: 065

REACTIONS (2)
  - Gastrointestinal disorder [Unknown]
  - Fistula [Not Recovered/Not Resolved]
